FAERS Safety Report 10368330 (Version 2)
Quarter: 2014Q4

REPORT INFORMATION
  Report Type: Spontaneous
  Country: US (occurrence: US)
  Receive Date: 20140807
  Receipt Date: 20141001
  Transmission Date: 20150528
  Serious: No
  Sender: FDA-Public Use
  Company Number: US-PFIZER INC-2014220115

PATIENT
  Age: 26 Year
  Sex: Male
  Weight: 95.24 kg

DRUGS (2)
  1. GEODON [Suspect]
     Active Substance: ZIPRASIDONE HYDROCHLORIDE\ZIPRASIDONE MESYLATE
     Indication: ANXIETY
     Dosage: 40 MG, 1X/DAY (AT BEDTIME)
  2. SINGULAIR [Concomitant]
     Active Substance: MONTELUKAST SODIUM
     Indication: ASTHMA
     Dosage: 10 MG, 1X/DAY

REACTIONS (9)
  - Feeling abnormal [Unknown]
  - Dry mouth [Unknown]
  - Dry throat [Unknown]
  - Drug dispensing error [Unknown]
  - Dry skin [Unknown]
  - Weight decreased [Unknown]
  - Drug effect incomplete [Unknown]
  - Dry eye [Unknown]
  - Nasal dryness [Unknown]

NARRATIVE: CASE EVENT DATE: 201407
